FAERS Safety Report 7553794-0 (Version None)
Quarter: 2011Q2

REPORT INFORMATION
  Report Type: 
  Country: None (occurrence: None)
  Receive Date: 20110617
  Receipt Date: 20110607
  Transmission Date: 20111010
  Serious: Yes (Hospitalization, Other)
  Sender: FDA-Public Use
  Company Number: DK-JNJFOC-20110207727

PATIENT
  Sex: Female

DRUGS (4)
  1. METHOTREXATE [Suspect]
     Indication: RHEUMATOID ARTHRITIS
     Route: 048
     Dates: start: 20071126, end: 20100729
  2. ORENCIA [Suspect]
     Indication: RHEUMATOID ARTHRITIS
     Dates: start: 20080805, end: 20101220
  3. ENBREL [Suspect]
     Indication: RHEUMATOID ARTHRITIS
     Dates: start: 20080317, end: 20080804
  4. REMICADE [Suspect]
     Indication: RHEUMATOID ARTHRITIS
     Dosage: AT WEEK 0, 2, 6, AND 8
     Route: 042
     Dates: start: 20071107, end: 20080317

REACTIONS (1)
  - BREAST CANCER STAGE IV [None]
